FAERS Safety Report 13911895 (Version 1)
Quarter: 2017Q3

REPORT INFORMATION
  Report Type: Spontaneous
  Country: US (occurrence: US)
  Receive Date: 20170827
  Receipt Date: 20170827
  Transmission Date: 20171127
  Serious: Yes (Other)
  Sender: FDA-Public Use
  Company Number: None

PATIENT
  Age: 69 Year
  Sex: Female
  Weight: 67.5 kg

DRUGS (6)
  1. ASPIRIN. [Concomitant]
     Active Substance: ASPIRIN
  2. NITRODUR PATCH [Concomitant]
  3. DIOVAN [Concomitant]
     Active Substance: VALSARTAN
  4. METOPROLOL. [Concomitant]
     Active Substance: METOPROLOL
  5. LEVOTHYROXINE. [Concomitant]
     Active Substance: LEVOTHYROXINE
  6. BRILINTA [Suspect]
     Active Substance: TICAGRELOR
     Indication: STENT PLACEMENT
     Route: 048
     Dates: start: 20170712, end: 20170827

REACTIONS (1)
  - Cystitis [None]

NARRATIVE: CASE EVENT DATE: 20170801
